FAERS Safety Report 10605597 (Version 1)
Quarter: 2014Q4

REPORT INFORMATION
  Report Type: Spontaneous
  Country: DE (occurrence: DE)
  Receive Date: 20141124
  Receipt Date: 20141124
  Transmission Date: 20150529
  Serious: Yes (Other)
  Sender: FDA-Public Use
  Company Number: DE-DRREDDYS-GER/GER/14/0044475

PATIENT
  Age: 53 Year
  Sex: Female

DRUGS (4)
  1. ZIPRASIDONE [Suspect]
     Active Substance: ZIPRASIDONE
     Route: 048
     Dates: start: 20140302
  2. LORAZEPAM. [Concomitant]
     Active Substance: LORAZEPAM
     Indication: PRODUCT USED FOR UNKNOWN INDICATION
     Route: 048
     Dates: start: 20140201
  3. ZIPRASIDONE [Suspect]
     Active Substance: ZIPRASIDONE
     Indication: PRODUCT USED FOR UNKNOWN INDICATION
     Route: 048
     Dates: end: 20140220
  4. ZIPRASIDONE [Suspect]
     Active Substance: ZIPRASIDONE
     Route: 048
     Dates: start: 20140221, end: 20140301

REACTIONS (2)
  - Psychotic disorder [Unknown]
  - Tremor [Recovered/Resolved]

NARRATIVE: CASE EVENT DATE: 20140223
